FAERS Safety Report 24291237 (Version 1)
Quarter: 2024Q3

REPORT INFORMATION
  Report Type: Spontaneous
  Country: US (occurrence: None)
  Receive Date: 20240906
  Receipt Date: 20240906
  Transmission Date: 20241017
  Serious: No
  Sender: DOMPE FARMACEUTICI
  Company Number: US-FARMAPROD-202308-202308-2376

PATIENT
  Sex: Male

DRUGS (7)
  1. OXERVATE [Suspect]
     Active Substance: CENEGERMIN-BKBJ
     Indication: Neurotrophic keratopathy
     Route: 047
     Dates: start: 20230801
  2. OXERVATE [Suspect]
     Active Substance: CENEGERMIN-BKBJ
  3. OXERVATE [Suspect]
     Active Substance: CENEGERMIN-BKBJ
  4. CEQUA [Concomitant]
     Active Substance: CYCLOSPORINE
  5. DIFLUPREDNATE [Concomitant]
     Active Substance: DIFLUPREDNATE
  6. FLAREX [Concomitant]
     Active Substance: FLUOROMETHOLONE ACETATE
  7. OPTASE [Concomitant]

REACTIONS (4)
  - Eye pain [Unknown]
  - Photophobia [Not Recovered/Not Resolved]
  - Ocular hyperaemia [Unknown]
  - Asthenopia [Unknown]
